FAERS Safety Report 7472353-1 (Version None)
Quarter: 2011Q2

REPORT INFORMATION
  Report Type: 
  Country: None (occurrence: None)
  Receive Date: 20110511
  Receipt Date: 20110503
  Transmission Date: 20111010
  Serious: Yes (Other)
  Sender: FDA-Public Use
  Company Number: PHFR2011GB02894

PATIENT
  Sex: Male

DRUGS (4)
  1. LITHIUM [Concomitant]
  2. CLOZARIL [Suspect]
     Indication: SCHIZOPHRENIA
     Route: 048
     Dates: start: 20110317
  3. VALPROATE SODIUM [Concomitant]
  4. LAMOTRIGINE [Concomitant]

REACTIONS (7)
  - PYREXIA [None]
  - C-REACTIVE PROTEIN INCREASED [None]
  - RED BLOOD CELL SEDIMENTATION RATE INCREASED [None]
  - NAUSEA [None]
  - WHITE BLOOD CELL COUNT INCREASED [None]
  - VOMITING [None]
  - HYPERHIDROSIS [None]
